FAERS Safety Report 20846650 (Version 3)
Quarter: 2023Q2

REPORT INFORMATION
  Report Type: Spontaneous
  Country: US (occurrence: US)
  Receive Date: 20220519
  Receipt Date: 20230417
  Transmission Date: 20230722
  Serious: Yes (Other)
  Sender: FDA-Public Use
  Company Number: US-BRISTOL-MYERS SQUIBB COMPANY-2022-040424

PATIENT
  Age: 69 Year
  Sex: Female
  Weight: 95.39 kg

DRUGS (2)
  1. REVLIMID [Suspect]
     Active Substance: LENALIDOMIDE
     Indication: Plasma cell myeloma
     Route: 048
  2. REVLIMID [Suspect]
     Active Substance: LENALIDOMIDE
     Dosage: FREQUENCY: 21 DAYS
     Route: 048

REACTIONS (4)
  - Plasma cell myeloma [Unknown]
  - Neuropathy peripheral [Unknown]
  - Diarrhoea [Unknown]
  - Muscle spasms [Unknown]
